FAERS Safety Report 6445679-8 (Version None)
Quarter: 2009Q4

REPORT INFORMATION
  Report Type: 
  Country: None (occurrence: None)
  Receive Date: 20091118
  Receipt Date: 20091118
  Transmission Date: 20100525
  Serious: Yes (Other)
  Sender: FDA-Public Use
  Company Number: None

PATIENT
  Sex: Male
  Weight: 65.7716 kg

DRUGS (1)
  1. DUREZOL [Suspect]
     Indication: IRITIS
     Dosage: 1 DROP 4 TIMES A DAY, INTRAOCULAR
     Route: 031
     Dates: start: 20091016, end: 20091116

REACTIONS (2)
  - CORNEAL DEGENERATION [None]
  - GLAUCOMA [None]
